FAERS Safety Report 4647088-0 (Version None)
Quarter: 2005Q2

REPORT INFORMATION
  Report Type: 
  Country: None (occurrence: None)
  Receive Date: 20050331
  Receipt Date: 20050128
  Transmission Date: 20051028
  Serious: No
  Sender: FDA-Public Use
  Company Number: 05P-163-0288561-00

PATIENT
  Age: 65 Year
  Sex: Female
  Weight: 57.1532 kg

DRUGS (8)
  1. HUMIRA [Suspect]
     Indication: RHEUMATOID ARTHRITIS
     Dosage: SEE IMAGE
     Route: 058
     Dates: start: 20030824, end: 20040801
  2. HUMIRA [Suspect]
     Indication: RHEUMATOID ARTHRITIS
     Dosage: SEE IMAGE
     Route: 058
     Dates: start: 20040801
  3. PREDNISONE [Concomitant]
  4. CALCIUM D3 ^STADA^ [Concomitant]
  5. CENTRUM [Concomitant]
  6. ASCORBIC ACID [Concomitant]
  7. RALOXIFENE HCL [Concomitant]
  8. LOTREL [Concomitant]

REACTIONS (5)
  - DRUG INEFFECTIVE [None]
  - EAR INFECTION [None]
  - HAIR GROWTH ABNORMAL [None]
  - RHEUMATOID ARTHRITIS [None]
  - SINUSITIS [None]
